FAERS Safety Report 16543661 (Version 1)
Quarter: 2019Q3

REPORT INFORMATION
  Report Type: Spontaneous
  Country: US (occurrence: US)
  Receive Date: 20190709
  Receipt Date: 20190709
  Transmission Date: 20191004
  Serious: No
  Sender: FDA-Public Use
  Company Number: US-GLENMARK PHARMACEUTICALS-2019GMK041222

PATIENT

DRUGS (6)
  1. TERAZOSIN [Concomitant]
     Active Substance: TERAZOSIN HYDROCHLORIDE
     Indication: PROSTATIC DISORDER
     Dosage: UNK
     Route: 065
  2. SIMVASTATIN. [Concomitant]
     Active Substance: SIMVASTATIN
     Indication: HYPERTENSION
     Dosage: UNK
     Route: 065
  3. MUPIROCIN CREAM USP, 2% [Suspect]
     Active Substance: MUPIROCIN
     Indication: POSTOPERATIVE CARE
     Dosage: UNK, BID
     Route: 065
     Dates: start: 20190503, end: 20190505
  4. LOSARTAN. [Concomitant]
     Active Substance: LOSARTAN
     Indication: MUSCLE SPASMS
     Dosage: UNK
     Route: 065
  5. FENOFIBRIC ACID. [Concomitant]
     Active Substance: FENOFIBRIC ACID
     Indication: BLOOD CHOLESTEROL INCREASED
     Dosage: UNK
     Route: 065
  6. FINASTERIDE. [Concomitant]
     Active Substance: FINASTERIDE
     Indication: PROSTATIC DISORDER
     Dosage: UNK
     Route: 065

REACTIONS (2)
  - Product use in unapproved indication [Unknown]
  - Rash [Not Recovered/Not Resolved]

NARRATIVE: CASE EVENT DATE: 20190503
